FAERS Safety Report 7217169-6 (Version None)
Quarter: 2011Q1

REPORT INFORMATION
  Report Type: 
  Country: None (occurrence: None)
  Receive Date: 20110110
  Receipt Date: 20101223
  Transmission Date: 20110831
  Serious: Yes (Hospitalization)
  Sender: FDA-Public Use
  Company Number: US-ELI_LILLY_AND_COMPANY-US201012004517

PATIENT
  Sex: Female
  Weight: 83.9 kg

DRUGS (11)
  1. PRAVASTATIN [Concomitant]
     Indication: HYPERLIPIDAEMIA
     Dosage: 10 MG, DAILY (1/D)
     Route: 048
  2. PRASUGREL HYDROCHLORIDE [Suspect]
     Indication: ACUTE CORONARY SYNDROME
     Dosage: 10 MG, DAILY (1/D)
     Route: 065
     Dates: start: 20100326
  3. CLONAZEPAM [Concomitant]
     Indication: BIPOLAR DISORDER
     Dosage: 1 MG, 2/D
     Route: 048
  4. COREG [Concomitant]
     Indication: HYPERTENSION
     Dosage: 6.25 MG, 2/D
     Route: 048
     Dates: start: 20100326
  5. ASPIRIN [Concomitant]
     Dosage: 325 MG, DAILY (1/D)
     Dates: start: 20100326
  6. HALOPERIDOL [Concomitant]
     Indication: BIPOLAR DISORDER
     Dosage: 1 D/F, DAILY (1/D)
     Route: 048
  7. ASPIRIN [Concomitant]
     Dosage: 81 MG, DAILY (1/D)
     Route: 048
     Dates: start: 20100506
  8. CLOPIDOGREL [Concomitant]
     Dosage: 450 MG, UNK
     Route: 065
     Dates: start: 20100322, end: 20100322
  9. DEPAKOTE [Concomitant]
     Indication: BIPOLAR DISORDER
     Dosage: 500 MG, DAILY (1/D)
     Route: 048
     Dates: start: 20100325
  10. CRESTOR [Concomitant]
     Indication: HYPERCHOLESTEROLAEMIA
     Dosage: 5 MG, DAILY (1/D)
     Route: 048
     Dates: start: 20100522
  11. EFFIENT [Concomitant]
     Indication: STENT PLACEMENT
     Dosage: 5 MG, DAILY (1/D)
     Route: 048
     Dates: start: 20100521

REACTIONS (1)
  - CARDIAC STRESS TEST ABNORMAL [None]
